FAERS Safety Report 8430532 (Version 5)
Quarter: 2015Q2

REPORT INFORMATION
  Report Type: Spontaneous
  Country: JP (occurrence: JP)
  Receive Date: 20120228
  Receipt Date: 20150413
  Transmission Date: 20150821
  Serious: Yes (Other)
  Sender: FDA-Public Use
  Company Number: JP-PFIZER INC-2012047556

PATIENT
  Age: 60 Year
  Sex: Female

DRUGS (5)
  1. TAKEPRON [Concomitant]
     Active Substance: LANSOPRAZOLE
     Dosage: UNK
  2. GRANISETRON [Concomitant]
     Active Substance: GRANISETRON
     Dosage: UNK
  3. LYRICA [Suspect]
     Active Substance: PREGABALIN
     Indication: PAIN MANAGEMENT
     Dosage: 150 MG, DAILY
     Route: 048
  4. LOXONIN [Concomitant]
     Active Substance: LOXOPROFEN SODIUM
     Dosage: UNK
  5. IRINOTECAN [Concomitant]
     Active Substance: IRINOTECAN
     Dosage: UNK

REACTIONS (1)
  - Electrocardiogram QT prolonged [Unknown]

NARRATIVE: CASE EVENT DATE: 20120222
